FAERS Safety Report 19499356 (Version 1)
Quarter: 2021Q3

REPORT INFORMATION
  Report Type: Spontaneous
  Country: CN (occurrence: CN)
  Receive Date: 20210706
  Receipt Date: 20210706
  Transmission Date: 20211014
  Serious: Yes (Hospitalization, Other)
  Sender: FDA-Public Use
  Company Number: CN-TAKEDA-2021TUS041457

PATIENT
  Age: 73 Year
  Sex: Male
  Weight: 72 kg

DRUGS (13)
  1. DARATUMUMAB [Suspect]
     Active Substance: DARATUMUMAB
     Indication: PLASMA CELL MYELOMA
     Dosage: 1120 MILLIGRAM
     Route: 058
     Dates: start: 20180802
  2. PODOSORDARIA NIGRIPES MYCELIUM [Concomitant]
     Dosage: UNK UNK, TID
     Route: 048
     Dates: start: 20210616
  3. PREDNISONE. [Suspect]
     Active Substance: PREDNISONE
     Dosage: 110 MILLIGRAM
     Route: 048
  4. DARATUMUMAB [Suspect]
     Active Substance: DARATUMUMAB
     Dosage: UNK
     Route: 058
     Dates: start: 20210402
  5. DARATUMUMAB [Suspect]
     Active Substance: DARATUMUMAB
     Dosage: 1800 MILLIGRAM
     Route: 058
     Dates: start: 20180824, end: 20210527
  6. BETAHISTINE HYDROCHLORIDE [Concomitant]
     Active Substance: BETAHISTINE HYDROCHLORIDE
     Dosage: UNK, BID
     Route: 048
     Dates: start: 20210606, end: 20210616
  7. VELCADE [Suspect]
     Active Substance: BORTEZOMIB
     Indication: PLASMA CELL MYELOMA
     Dosage: 2.3 MILLIGRAM
     Route: 058
     Dates: start: 20180802
  8. MELPHALAN. [Suspect]
     Active Substance: MELPHALAN
     Indication: PLASMA CELL MYELOMA
     Dosage: 16 MILLIGRAM/KILOGRAM
     Route: 048
     Dates: start: 20180802
  9. LIGUSTICUM WALLICHII [Concomitant]
     Dosage: UNK, TID
     Route: 048
     Dates: start: 20210606
  10. VELCADE [Suspect]
     Active Substance: BORTEZOMIB
     Dosage: UNK
     Route: 058
     Dates: start: 20180824, end: 20190826
  11. MELPHALAN. [Suspect]
     Active Substance: MELPHALAN
     Dosage: 16 MILLIGRAM
     Route: 048
     Dates: start: 20180824, end: 20190729
  12. PREDNISONE. [Suspect]
     Active Substance: PREDNISONE
     Indication: PLASMA CELL MYELOMA
     Dosage: 110 MILLIGRAM
     Route: 048
     Dates: start: 20180802
  13. METHYLPREDNISOLONE. [Concomitant]
     Active Substance: METHYLPREDNISOLONE
     Dosage: UNK, QD
     Route: 042
     Dates: start: 20210606, end: 20210616

REACTIONS (1)
  - Sudden hearing loss [Recovered/Resolved]

NARRATIVE: CASE EVENT DATE: 20210604
